FAERS Safety Report 7780515-9 (Version None)
Quarter: 2011Q3

REPORT INFORMATION
  Report Type: 
  Country: None (occurrence: None)
  Receive Date: 20110927
  Receipt Date: 20110920
  Transmission Date: 20111222
  Serious: Yes (Other)
  Sender: FDA-Public Use
  Company Number: JP-B.I. PHARMACEUTICALS,INC./RIDGEFIELD-2011-BP-22524NB

PATIENT
  Age: 76 Year
  Sex: Female

DRUGS (4)
  1. CRESTOR [Concomitant]
     Dosage: NR
     Route: 048
     Dates: end: 20110601
  2. AMLODIPINE [Suspect]
     Dosage: NR
     Route: 048
     Dates: start: 20110401, end: 20110601
  3. MOBIC [Suspect]
     Dosage: 10 MG
     Route: 048
     Dates: start: 20110401, end: 20110601
  4. CANDESARTAN CILEXETIL [Concomitant]
     Dosage: NR
     Route: 048
     Dates: end: 20110601

REACTIONS (1)
  - PNEUMONITIS [None]
